FAERS Safety Report 21841817 (Version 1)
Quarter: 2023Q1

REPORT INFORMATION
  Report Type: Spontaneous
  Country: PL (occurrence: PL)
  Receive Date: 20230110
  Receipt Date: 20230110
  Transmission Date: 20230417
  Serious: Yes (Other)
  Sender: FDA-Public Use
  Company Number: PL-KRKA-PL2022K16358LIT

PATIENT
  Age: 41 Year
  Sex: Male

DRUGS (12)
  1. ATORVASTATIN [Interacting]
     Active Substance: ATORVASTATIN
     Indication: Dyslipidaemia
     Dosage: 40 MILLIGRAM, ONCE A DAY
     Route: 065
  2. IBUPROFEN [Interacting]
     Active Substance: IBUPROFEN
     Indication: Analgesic therapy
     Dosage: 1800 MILLIGRAM, ONCE A DAY
     Route: 065
  3. QUETIAPINE [Interacting]
     Active Substance: QUETIAPINE
     Indication: Anxiety
     Dosage: 100 MILLIGRAM, ONCE A DAY
     Route: 065
  4. QUETIAPINE [Interacting]
     Active Substance: QUETIAPINE
     Indication: Insomnia
  5. TRAMADOL [Interacting]
     Active Substance: TRAMADOL
     Indication: Analgesic therapy
     Dosage: 200 MILLIGRAM, ONCE A DAY
     Route: 065
  6. TRAMADOL [Interacting]
     Active Substance: TRAMADOL
     Dosage: 300 MILLIGRAM, ONCE A DAY
     Route: 065
  7. OMEPRAZOLE [Interacting]
     Active Substance: OMEPRAZOLE
     Indication: Abdominal pain upper
     Dosage: 40 MILLIGRAM, ONCE A DAY (40 MG, 1X PER DAY)
     Route: 048
  8. METAMIZOLE [Concomitant]
     Active Substance: METAMIZOLE
     Indication: Pain
     Dosage: 1000 MILLIGRAM, ONCE A DAY (1000 MG, PER DAY (UP TO 5000 MG/DAY)
     Route: 065
  9. PREGABALIN [Concomitant]
     Active Substance: PREGABALIN
     Indication: Sleep disorder
     Dosage: 75 MILLIGRAM (AT NIGHT)
     Route: 065
  10. PREGABALIN [Concomitant]
     Active Substance: PREGABALIN
     Indication: Visceral pain
  11. PREGABALIN [Concomitant]
     Active Substance: PREGABALIN
     Indication: Anxiety
  12. BUPRENORPHINE [Concomitant]
     Active Substance: BUPRENORPHINE
     Indication: Product used for unknown indication
     Dosage: 17.5 MICROGRAM/HOUR (17.5 UG/H,PATCH CHANGE WAS RECOMMENDED EVERY 72 HOURS)
     Route: 065

REACTIONS (6)
  - Seizure [Unknown]
  - Drug interaction [Unknown]
  - Pain [Recovering/Resolving]
  - Anxiety [Recovering/Resolving]
  - Sleep disorder [Recovering/Resolving]
  - Drug ineffective [Recovering/Resolving]
